FAERS Safety Report 25586027 (Version 2)
Quarter: 2025Q3

REPORT INFORMATION
  Report Type: Report from Study
  Country: US (occurrence: US)
  Receive Date: 20250721
  Receipt Date: 20250804
  Transmission Date: 20251021
  Serious: Yes (Hospitalization, Other)
  Sender: UCB
  Company Number: US-UCBSA-2025044243

PATIENT
  Age: 6 Year
  Sex: Male
  Weight: 17 kg

DRUGS (2)
  1. FINTEPLA [Suspect]
     Active Substance: FENFLURAMINE
     Indication: Product used for unknown indication
     Dosage: 3.4 MILLILITER, 2X/DAY (BID)
     Dates: start: 20220301
  2. BRIVIACT [Concomitant]
     Active Substance: BRIVARACETAM
     Indication: Product used for unknown indication
     Dosage: 5 MILLILITER, 2X/DAY (BID)

REACTIONS (5)
  - Seizure [Recovered/Resolved]
  - Therapeutic procedure [Recovered/Resolved]
  - Vomiting [Recovered/Resolved]
  - Anaesthetic complication [Recovered/Resolved]
  - Blood glucose decreased [Recovered/Resolved]

NARRATIVE: CASE EVENT DATE: 20250701
